FAERS Safety Report 8058823-6 (Version None)
Quarter: 2012Q1

REPORT INFORMATION
  Report Type: 
  Country: None (occurrence: None)
  Receive Date: 20120120
  Receipt Date: 20111215
  Transmission Date: 20120608
  Serious: No
  Sender: FDA-Public Use
  Company Number: US-BRISTOL-MYERS SQUIBB COMPANY-16296469

PATIENT
  Age: 59 Year
  Sex: Female

DRUGS (1)
  1. YERVOY [Suspect]
     Dosage: 4 TREATMENTS BETWEEN JUN 10 AND AUG 15.

REACTIONS (1)
  - GRANULOMA [None]
